FAERS Safety Report 22358578 (Version 2)
Quarter: 2023Q2

REPORT INFORMATION
  Report Type: Report from Study
  Country: EG (occurrence: EG)
  Receive Date: 20230524
  Receipt Date: 20230605
  Transmission Date: 20230721
  Serious: Yes (Other)
  Sender: FDA-Public Use
  Company Number: EG-002147023-NVSC2023EG116922

PATIENT
  Age: 6 Year
  Sex: Female

DRUGS (2)
  1. OMNITROPE [Suspect]
     Active Substance: SOMATROPIN
     Indication: Growth hormone deficiency
     Dosage: 0.8 MG, QD
     Route: 058
     Dates: start: 20221127
  2. OMNITROPE [Suspect]
     Active Substance: SOMATROPIN
     Dosage: 0.8 MG, QD
     Route: 058
     Dates: start: 20230516

REACTIONS (4)
  - Hypersensitivity [Not Recovered/Not Resolved]
  - Cough [Not Recovered/Not Resolved]
  - Product dose omission issue [Not Recovered/Not Resolved]
  - Wrong technique in product usage process [Recovered/Resolved]

NARRATIVE: CASE EVENT DATE: 20221127
